FAERS Safety Report 22134597 (Version 6)
Quarter: 2023Q4

REPORT INFORMATION
  Report Type: Report from Study
  Country: US (occurrence: US)
  Receive Date: 20230324
  Receipt Date: 20231117
  Transmission Date: 20240109
  Serious: Yes (Other)
  Sender: FDA-Public Use
  Company Number: US-ABBVIE-4701110

PATIENT
  Age: 76 Year
  Sex: Male

DRUGS (2)
  1. HUMIRA [Suspect]
     Active Substance: ADALIMUMAB
     Indication: Colitis ulcerative
     Dosage: CF, FORM STRENGTH: 40 MILLIGRAM
     Route: 058
     Dates: start: 20200710
  2. LUPRON [Suspect]
     Active Substance: LEUPROLIDE ACETATE
     Indication: Prostate cancer stage IV
     Route: 030

REACTIONS (14)
  - Loss of consciousness [Unknown]
  - Cough [Recovering/Resolving]
  - Fall [Not Recovered/Not Resolved]
  - Fall [Recovering/Resolving]
  - Rib fracture [Recovered/Resolved]
  - Blood pressure abnormal [Not Recovered/Not Resolved]
  - Shoulder fracture [Recovering/Resolving]
  - Fatigue [Recovering/Resolving]
  - Emotional disorder [Not Recovered/Not Resolved]
  - Cardiac disorder [Not Recovered/Not Resolved]
  - Balance disorder [Unknown]
  - Dyspnoea [Recovering/Resolving]
  - Balance disorder [Not Recovered/Not Resolved]
  - Gynaecomastia [Not Recovered/Not Resolved]

NARRATIVE: CASE EVENT DATE: 20210726
